FAERS Safety Report 20936697 (Version 4)
Quarter: 2023Q2

REPORT INFORMATION
  Report Type: Other
  Country: CA (occurrence: CA)
  Receive Date: 20220609
  Receipt Date: 20230605
  Transmission Date: 20230722
  Serious: No
  Sender: FDA-Public Use
  Company Number: CA-TOLMAR, INC.-22CA034854

PATIENT
  Age: 69 Year
  Sex: Male

DRUGS (4)
  1. ELIGARD [Suspect]
     Active Substance: LEUPROLIDE ACETATE
     Indication: Prostate cancer
     Dosage: 22.5 MILLIGRAM, Q 3 MONTH
     Route: 058
     Dates: start: 20220525
  2. ELIGARD [Suspect]
     Active Substance: LEUPROLIDE ACETATE
     Dosage: 22.5 MILLIGRAM, Q 3 MONTH
     Route: 058
     Dates: start: 20220817
  3. ELIGARD [Suspect]
     Active Substance: LEUPROLIDE ACETATE
     Dosage: 22.5 MILLIGRAM, Q 3 MONTH
     Route: 058
     Dates: start: 20221109
  4. ELIGARD [Suspect]
     Active Substance: LEUPROLIDE ACETATE
     Dosage: 22.5 MILLIGRAM, Q 3 MONTH
     Route: 058
     Dates: start: 20230519

REACTIONS (7)
  - Intentional product use issue [Recovered/Resolved]
  - Injection site pain [Unknown]
  - Hot flush [Not Recovered/Not Resolved]
  - Fatigue [Not Recovered/Not Resolved]
  - Asthenia [Not Recovered/Not Resolved]
  - Injection site mass [Not Recovered/Not Resolved]
  - Muscle atrophy [Not Recovered/Not Resolved]

NARRATIVE: CASE EVENT DATE: 20220525
